FAERS Safety Report 7152785-1 (Version None)
Quarter: 2010Q4

REPORT INFORMATION
  Report Type: 
  Country: None (occurrence: None)
  Receive Date: 20101208
  Receipt Date: 20101208
  Transmission Date: 20110411
  Serious: Yes (Hospitalization)
  Sender: FDA-Public Use
  Company Number: None

PATIENT
  Sex: Female
  Weight: 123.18 kg

DRUGS (2)
  1. CISPLATIN [Suspect]
     Dosage: 75 MG
  2. ALIMTA [Suspect]
     Dosage: 750 MG

REACTIONS (7)
  - DEHYDRATION [None]
  - GASTROOESOPHAGEAL REFLUX DISEASE [None]
  - LYMPHADENOPATHY [None]
  - MEDICAL DEVICE COMPLICATION [None]
  - METASTASES TO BONE [None]
  - NAUSEA [None]
  - VOMITING [None]
